FAERS Safety Report 24981653 (Version 1)
Quarter: 2025Q1

REPORT INFORMATION
  Report Type: Spontaneous
  Country: PL (occurrence: PL)
  Receive Date: 20250218
  Receipt Date: 20250218
  Transmission Date: 20250408
  Serious: Yes (Death)
  Sender: PFIZER
  Company Number: PL-PFIZER INC-202500037544

PATIENT
  Sex: Male

DRUGS (1)
  1. LORLATINIB [Suspect]
     Active Substance: LORLATINIB

REACTIONS (1)
  - Death [Fatal]
